FAERS Safety Report 13394750 (Version 1)
Quarter: 2017Q2

REPORT INFORMATION
  Report Type: Spontaneous
  Country: US (occurrence: US)
  Receive Date: 20170403
  Receipt Date: 20170403
  Transmission Date: 20170830
  Serious: Yes (Other)
  Sender: FDA-Public Use
  Company Number: US-STRIDES ARCOLAB LIMITED-2016SP016705

PATIENT

DRUGS (2)
  1. CETIRIZINE [Concomitant]
     Active Substance: CETIRIZINE HYDROCHLORIDE
     Indication: PRODUCT USED FOR UNKNOWN INDICATION
     Dosage: UNK
  2. IBUPROFEN. [Suspect]
     Active Substance: IBUPROFEN
     Indication: TOOTHACHE
     Dosage: UNK

REACTIONS (7)
  - Blister [Recovered/Resolved]
  - Skin exfoliation [Recovered/Resolved]
  - Epidermal necrosis [Recovered/Resolved]
  - Lymphocytic infiltration [Recovered/Resolved]
  - Fixed eruption [Recovered/Resolved]
  - Pain [Recovered/Resolved]
  - Necrosis [Recovered/Resolved]
